FAERS Safety Report 16896117 (Version 1)
Quarter: 2019Q4

REPORT INFORMATION
  Report Type: Spontaneous
  Country: US (occurrence: US)
  Receive Date: 20191008
  Receipt Date: 20191008
  Transmission Date: 20200122
  Serious: No
  Sender: FDA-Public Use
  Company Number: US-INDIVIOR US-INDV-118775-2019

PATIENT
  Age: 30 Year
  Sex: Female

DRUGS (5)
  1. SUBOXONE [Suspect]
     Active Substance: BUPRENORPHINE HYDROCHLORIDE\NALOXONE HYDROCHLORIDE
     Indication: DRUG DEPENDENCE
     Dosage: HALF OF 12 MG FILM, BID
     Route: 060
     Dates: start: 201903
  2. SUBOXONE [Suspect]
     Active Substance: BUPRENORPHINE HYDROCHLORIDE\NALOXONE HYDROCHLORIDE
     Indication: DRUG DEPENDENCE
     Dosage: TWO 8 MG FILMS DAILY (16MG)
     Route: 060
     Dates: start: 2017
  3. SUBOXONE [Suspect]
     Active Substance: BUPRENORPHINE HYDROCHLORIDE\NALOXONE HYDROCHLORIDE
     Dosage: 8 MG, UNK
     Route: 060
  4. SUBOXONE [Suspect]
     Active Substance: BUPRENORPHINE HYDROCHLORIDE\NALOXONE HYDROCHLORIDE
     Dosage: GETTING DOWN TO 4MG, UNK
     Route: 060
     Dates: end: 201903
  5. BUPRENORPHINE TABLET GENERIC [Suspect]
     Active Substance: BUPRENORPHINE
     Indication: DRUG DEPENDENCE
     Dosage: UNK
     Route: 065

REACTIONS (13)
  - Nausea [Unknown]
  - Headache [Unknown]
  - Bipolar disorder [Unknown]
  - Inappropriate schedule of product administration [Not Recovered/Not Resolved]
  - Drug dependence [Not Recovered/Not Resolved]
  - Wrong technique in product usage process [Not Recovered/Not Resolved]
  - Schizophrenia [Unknown]
  - Anxiety [Unknown]
  - Depression [Unknown]
  - Abdominal pain upper [Unknown]
  - Back pain [Unknown]
  - Abdominal discomfort [Unknown]
  - Treatment failure [Unknown]

NARRATIVE: CASE EVENT DATE: 201903
